FAERS Safety Report 4321213-3 (Version None)
Quarter: 2004Q1

REPORT INFORMATION
  Report Type: 
  Country: None (occurrence: None)
  Receive Date: 20040322
  Receipt Date: 20031219
  Transmission Date: 20041129
  Serious: No
  Sender: FDA-Public Use
  Company Number: A-US2003-04095

PATIENT
  Age: 42 Year
  Sex: Female

DRUGS (8)
  1. TRACLEER [Suspect]
     Indication: PULMONARY HYPERTENSION
     Dosage: 125 MG, BID, ORAL; 62.5 MG, BID, ORAL
     Route: 048
     Dates: start: 20030310, end: 20030401
  2. TRACLEER [Suspect]
     Indication: PULMONARY HYPERTENSION
     Dosage: 125 MG, BID, ORAL; 62.5 MG, BID, ORAL
     Route: 048
     Dates: start: 20030401
  3. SYNTHROID [Concomitant]
  4. PENICILLIN ^GRUNENTHAL^ (BENZYLPENICILLIN SODIUM) [Concomitant]
  5. PATANOL [Concomitant]
  6. ASPIRIN ^BAYER^ (ACETYLSALICYCLIC ACID) [Concomitant]
  7. CLARITIN [Concomitant]
  8. COENZYME [Concomitant]

REACTIONS (2)
  - FATIGUE [None]
  - LARYNGITIS [None]
